FAERS Safety Report 18525827 (Version 2)
Quarter: 2021Q3

REPORT INFORMATION
  Report Type: Other
  Country: CA (occurrence: CA)
  Receive Date: 20201119
  Receipt Date: 20210824
  Transmission Date: 20211014
  Serious: Yes (Hospitalization, Other)
  Sender: FDA-Public Use
  Company Number: CA-CELLTRION INC.-2020CA031562

PATIENT

DRUGS (29)
  1. RITUXIMAB (UNKNOWN) [Suspect]
     Active Substance: RITUXIMAB
     Indication: VASCULITIS
     Dosage: 500 MG, 1 EVERY 6 MONTHS
     Route: 042
  2. SULFATRIM [Concomitant]
     Active Substance: SULFAMETHOXAZOLE\TRIMETHOPRIM
  3. RITUXIMAB (UNKNOWN) [Suspect]
     Active Substance: RITUXIMAB
     Dosage: 750 MG, 1 EVERY 4 MONTHS (DURATION: ?179.0)
     Route: 042
  4. AZATHIOPRINE. [Concomitant]
     Active Substance: AZATHIOPRINE
  5. BENADRYL [Concomitant]
     Active Substance: DIPHENHYDRAMINE HYDROCHLORIDE
  6. RANITIDINE. [Concomitant]
     Active Substance: RANITIDINE
  7. RITUXIMAB (UNKNOWN) [Suspect]
     Active Substance: RITUXIMAB
     Indication: FELTY^S SYNDROME
     Dosage: 800 MG, 1 EVERY 4 MONTHS (DURATION: ?298.0)
     Route: 042
  8. RITUXIMAB (UNKNOWN) [Suspect]
     Active Substance: RITUXIMAB
     Dosage: UNK
     Route: 042
  9. FENOFIBRATE. [Concomitant]
     Active Substance: FENOFIBRATE
  10. FOLIC ACID. [Concomitant]
     Active Substance: FOLIC ACID
  11. TYLENOL [Concomitant]
     Active Substance: ACETAMINOPHEN
  12. ACETAMINOPHEN. [Concomitant]
     Active Substance: ACETAMINOPHEN
     Indication: PREMEDICATION
     Dosage: 650 MG
     Route: 048
  13. DIPHENHYDRAMINE HYDROCHLORIDE. [Concomitant]
     Active Substance: DIPHENHYDRAMINE HYDROCHLORIDE
     Indication: PREMEDICATION
     Dosage: 50 MG
     Route: 048
  14. METHYLPREDNISOLONE SODIUM SUCCINATE. [Concomitant]
     Active Substance: METHYLPREDNISOLONE SODIUM SUCCINATE
  15. MIRTAZAPINE. [Concomitant]
     Active Substance: MIRTAZAPINE
  16. PREGABALIN. [Concomitant]
     Active Substance: PREGABALIN
  17. RITUXIMAB (UNKNOWN) [Suspect]
     Active Substance: RITUXIMAB
     Dosage: 800 MG
     Route: 042
  18. ALLOPURINOL. [Concomitant]
     Active Substance: ALLOPURINOL
  19. LORAZEPAM. [Concomitant]
     Active Substance: LORAZEPAM
  20. METFORMIN [Concomitant]
     Active Substance: METFORMIN HYDROCHLORIDE
     Route: 065
  21. METHYLPREDNISOLONE. [Concomitant]
     Active Substance: METHYLPREDNISOLONE
     Indication: PREMEDICATION
     Dosage: 100 MG
     Route: 042
  22. QUETIAPINE. [Concomitant]
     Active Substance: QUETIAPINE
  23. RITUXIMAB (UNKNOWN) [Suspect]
     Active Substance: RITUXIMAB
     Indication: RHEUMATOID ARTHRITIS
     Dosage: 750 MG, 1 EVERY 1 WEEK
     Route: 042
  24. ATORVASTATIN [Concomitant]
     Active Substance: ATORVASTATIN
  25. IRON SULPHATE [Concomitant]
     Active Substance: FERROUS SULFATE ANHYDROUS
  26. ONGLYZA [Concomitant]
     Active Substance: SAXAGLIPTIN HYDROCHLORIDE
  27. PANTOLOC [Concomitant]
     Active Substance: PANTOPRAZOLE SODIUM
  28. PREDNISONE. [Concomitant]
     Active Substance: PREDNISONE
  29. VITAMIN B1 [Concomitant]
     Active Substance: THIAMINE HYDROCHLORIDE

REACTIONS (12)
  - Face oedema [Not Recovered/Not Resolved]
  - Peripheral swelling [Not Recovered/Not Resolved]
  - Blood pressure fluctuation [Not Recovered/Not Resolved]
  - Skin mass [Not Recovered/Not Resolved]
  - Blood magnesium decreased [Not Recovered/Not Resolved]
  - Body temperature decreased [Not Recovered/Not Resolved]
  - Pneumonia [Not Recovered/Not Resolved]
  - Off label use [Unknown]
  - Blood pressure diastolic abnormal [Not Recovered/Not Resolved]
  - Haemorrhoids [Not Recovered/Not Resolved]
  - Oxygen saturation decreased [Not Recovered/Not Resolved]
  - Weight decreased [Not Recovered/Not Resolved]
